FAERS Safety Report 11337395 (Version 1)
Quarter: 2015Q3

REPORT INFORMATION
  Report Type: Spontaneous
  Country: US (occurrence: US)
  Receive Date: 20150803
  Receipt Date: 20150803
  Transmission Date: 20151125
  Serious: No
  Sender: FDA-Public Use
  Company Number: US-ELI_LILLY_AND_COMPANY-US200802004460

PATIENT
  Age: 34 Year
  Sex: Female
  Weight: 106.58 kg

DRUGS (7)
  1. ZYPREXA [Suspect]
     Active Substance: OLANZAPINE
     Dosage: 30 MG, UNK
     Dates: start: 200201, end: 200708
  2. ZYPREXA [Suspect]
     Active Substance: OLANZAPINE
     Dosage: 15 MG, UNK
     Dates: start: 199803
  3. REMERON [Concomitant]
     Active Substance: MIRTAZAPINE
     Dates: start: 20070831
  4. SEROQUEL [Concomitant]
     Active Substance: QUETIAPINE FUMARATE
     Dates: start: 2007
  5. ANAFRANIL [Concomitant]
     Active Substance: CLOMIPRAMINE HYDROCHLORIDE
     Dates: start: 2007
  6. MICROZIDE [Concomitant]
     Active Substance: HYDROCHLOROTHIAZIDE
     Dates: start: 20071120
  7. CELEXA [Concomitant]
     Active Substance: CITALOPRAM HYDROBROMIDE
     Dates: start: 20070829, end: 20070831

REACTIONS (6)
  - Hypertension [Unknown]
  - Diabetes mellitus [Not Recovered/Not Resolved]
  - Blood cholesterol increased [Unknown]
  - Blood triglycerides increased [Unknown]
  - Prescribed overdose [Recovered/Resolved]
  - Vision blurred [Unknown]

NARRATIVE: CASE EVENT DATE: 200201
